FAERS Safety Report 11731517 (Version 1)
Quarter: 2015Q4

REPORT INFORMATION
  Report Type: Spontaneous
  Country: US (occurrence: US)
  Receive Date: 20151110
  Receipt Date: 20151110
  Transmission Date: 20160304
  Serious: No
  Sender: FDA-Public Use
  Company Number: US-ELI_LILLY_AND_COMPANY-US201203004681

PATIENT
  Age: 84 Year
  Sex: Female

DRUGS (1)
  1. FORTEO [Suspect]
     Active Substance: TERIPARATIDE
     Indication: BONE DISORDER
     Dosage: UNK UNK, QD
     Dates: start: 20110914

REACTIONS (5)
  - Arthralgia [Unknown]
  - Intentional product misuse [Unknown]
  - Myalgia [Unknown]
  - Off label use [Unknown]
  - Headache [Unknown]
